FAERS Safety Report 21729175 (Version 43)
Quarter: 2025Q2

REPORT INFORMATION
  Report Type: Report from Study
  Country: US (occurrence: US)
  Receive Date: 20221214
  Receipt Date: 20250619
  Transmission Date: 20250716
  Serious: Yes (Hospitalization, Other)
  Sender: TAKEDA
  Company Number: US-TAKEDA-2022TUS096170

PATIENT
  Age: 59 Year
  Sex: Female
  Weight: 63 kg

DRUGS (32)
  1. HUMAN IMMUNOGLOBULIN G [Suspect]
     Active Substance: HUMAN IMMUNOGLOBULIN G
     Indication: Immunodeficiency common variable
     Dosage: 20 GRAM, Q2WEEKS
  2. HUMAN IMMUNOGLOBULIN G [Suspect]
     Active Substance: HUMAN IMMUNOGLOBULIN G
     Indication: Primary immunodeficiency syndrome
  3. HUMAN IMMUNOGLOBULIN G [Suspect]
     Active Substance: HUMAN IMMUNOGLOBULIN G
     Indication: Hypogammaglobulinaemia
  4. HUMAN IMMUNOGLOBULIN G [Suspect]
     Active Substance: HUMAN IMMUNOGLOBULIN G
     Dosage: 20 GRAM, Q2WEEKS
  5. HUMAN IMMUNOGLOBULIN G [Suspect]
     Active Substance: HUMAN IMMUNOGLOBULIN G
     Dosage: 20 GRAM, Q2WEEKS
  6. HUMAN IMMUNOGLOBULIN G [Suspect]
     Active Substance: HUMAN IMMUNOGLOBULIN G
     Dosage: 20 GRAM, Q2WEEKS
  7. HUMAN IMMUNOGLOBULIN G [Suspect]
     Active Substance: HUMAN IMMUNOGLOBULIN G
  8. HUMAN IMMUNOGLOBULIN G [Suspect]
     Active Substance: HUMAN IMMUNOGLOBULIN G
     Dosage: 20 GRAM, Q2WEEKS
  9. ACETAMINOPHEN [Concomitant]
     Active Substance: ACETAMINOPHEN
     Indication: Product used for unknown indication
  10. OMEPRAZOLE [Concomitant]
     Active Substance: OMEPRAZOLE
     Indication: Product used for unknown indication
  11. XIIDRA [Concomitant]
     Active Substance: LIFITEGRAST
     Indication: Product used for unknown indication
  12. VYVANSE [Concomitant]
     Active Substance: LISDEXAMFETAMINE DIMESYLATE
     Indication: Product used for unknown indication
  13. LIDOCAINE [Concomitant]
     Active Substance: LIDOCAINE
  14. DIPHENHYDRAMINE HYDROCHLORIDE [Concomitant]
     Active Substance: DIPHENHYDRAMINE HYDROCHLORIDE
  15. WELLBUTRIN XL [Concomitant]
     Active Substance: BUPROPION HYDROCHLORIDE
     Indication: Product used for unknown indication
  16. VITAMIN D3 [Concomitant]
     Active Substance: CHOLECALCIFEROL
  17. Lmx [Concomitant]
     Indication: Product used for unknown indication
  18. WELLBUTRIN [Concomitant]
     Active Substance: BUPROPION HYDROCHLORIDE
     Indication: Product used for unknown indication
  19. FLONASE ALLERGY RELIEF [Concomitant]
     Active Substance: FLUTICASONE PROPIONATE
  20. TRINTELLIX [Concomitant]
     Active Substance: VORTIOXETINE HYDROBROMIDE
     Indication: Product used for unknown indication
  21. CLINDAMYCIN HYDROCHLORIDE [Concomitant]
     Active Substance: CLINDAMYCIN HYDROCHLORIDE
  22. Covid-19 vaccine [Concomitant]
  23. DIPHENHYDRAMINE [Concomitant]
     Active Substance: DIPHENHYDRAMINE
     Indication: Product used for unknown indication
  24. EPINEPHRINE [Concomitant]
     Active Substance: EPINEPHRINE
     Indication: Product used for unknown indication
  25. PROAIR HFA [Concomitant]
     Active Substance: ALBUTEROL SULFATE
     Indication: Product used for unknown indication
  26. HYDROXYCHLOROQUINE SULFATE [Concomitant]
     Active Substance: HYDROXYCHLOROQUINE SULFATE
  27. OXYCODONE [Concomitant]
     Active Substance: OXYCODONE
  28. CELEBREX [Concomitant]
     Active Substance: CELECOXIB
  29. GABAPENTIN [Concomitant]
     Active Substance: GABAPENTIN
  30. CLONAZEPAM [Concomitant]
     Active Substance: CLONAZEPAM
  31. FOLIC ACID [Concomitant]
     Active Substance: FOLIC ACID
  32. METHOTREXATE [Concomitant]
     Active Substance: METHOTREXATE

REACTIONS (96)
  - Post procedural haemorrhage [Unknown]
  - Mental disorder [Unknown]
  - Depression [Unknown]
  - COVID-19 [Recovering/Resolving]
  - Suicidal ideation [Unknown]
  - Oesophageal candidiasis [Unknown]
  - Lower respiratory tract infection [Unknown]
  - Cataract [Unknown]
  - Type III immune complex mediated reaction [Unknown]
  - Retinal tear [Unknown]
  - Spinal cord neoplasm [Unknown]
  - Lymphoma [Unknown]
  - Rheumatoid arthritis [Unknown]
  - Systemic lupus erythematosus [Unknown]
  - Pneumonia [Unknown]
  - Osteomyelitis [Unknown]
  - Barrett^s oesophagus [Unknown]
  - Influenza [Unknown]
  - Myocardial infarction [Unknown]
  - Blood pressure increased [Unknown]
  - Bronchiectasis [Unknown]
  - Seasonal allergy [Unknown]
  - Illness [Unknown]
  - Back disorder [Unknown]
  - Product dose omission issue [Unknown]
  - Alopecia [Unknown]
  - Sinus disorder [Unknown]
  - Localised infection [Not Recovered/Not Resolved]
  - Connective tissue disorder [Unknown]
  - Fibromyalgia [Unknown]
  - Soft tissue disorder [Unknown]
  - Hernia [Unknown]
  - Pharyngitis [Unknown]
  - Renal disorder [Unknown]
  - Gastroenteritis viral [Not Recovered/Not Resolved]
  - Labyrinthitis [Unknown]
  - Post procedural infection [Unknown]
  - Respiratory tract congestion [Not Recovered/Not Resolved]
  - Cardiac disorder [Unknown]
  - Obstruction [Unknown]
  - Pleural effusion [Unknown]
  - Pulmonary mass [Unknown]
  - Urinary tract infection [Unknown]
  - Ehlers-Danlos syndrome [Unknown]
  - Slipping rib syndrome [Unknown]
  - Nasal septum deviation [Unknown]
  - Raynaud^s phenomenon [Unknown]
  - Osteoarthritis [Unknown]
  - Arthropathy [Unknown]
  - Spinal disorder [Unknown]
  - Bladder disorder [Unknown]
  - Middle ear effusion [Unknown]
  - Undifferentiated connective tissue disease [Unknown]
  - Cold urticaria [Not Recovered/Not Resolved]
  - Spinal flattening [Unknown]
  - Insurance issue [Unknown]
  - Gastrooesophageal reflux disease [Unknown]
  - Memory impairment [Unknown]
  - Back disorder [Unknown]
  - Nasopharyngitis [Unknown]
  - Gait disturbance [Unknown]
  - Fall [Unknown]
  - Scoliosis [Unknown]
  - Allergic cough [Unknown]
  - Brain fog [Unknown]
  - Bacterial infection [Unknown]
  - Sinusitis [Unknown]
  - Swelling face [Unknown]
  - Musculoskeletal chest pain [Unknown]
  - Abdominal discomfort [Unknown]
  - Asthma [Unknown]
  - Rhinorrhoea [Unknown]
  - Balance disorder [Unknown]
  - Rash papular [Unknown]
  - Asthenia [Unknown]
  - Lymphadenopathy [Unknown]
  - Cough [Unknown]
  - Pain [Unknown]
  - Infusion site swelling [Unknown]
  - Headache [Unknown]
  - Fatigue [Unknown]
  - Nausea [Unknown]
  - Dizziness [Unknown]
  - Malaise [Unknown]
  - Back pain [Recovering/Resolving]
  - Dyspnoea [Unknown]
  - Bronchitis [Unknown]
  - Infection [Unknown]
  - Gastrointestinal disorder [Unknown]
  - Breast mass [Unknown]
  - Candida infection [Unknown]
  - Fungal infection [Unknown]
  - Polyp [Unknown]
  - Haemorrhoids [Unknown]
  - Road traffic accident [Unknown]
  - Vertigo [Unknown]

NARRATIVE: CASE EVENT DATE: 20200110
